FAERS Safety Report 6312099-6 (Version None)
Quarter: 2009Q3

REPORT INFORMATION
  Report Type: 
  Country: None (occurrence: None)
  Receive Date: 20090817
  Receipt Date: 20090813
  Transmission Date: 20100115
  Serious: Yes (Life-Threatening)
  Sender: FDA-Public Use
  Company Number: JP-ASTRAZENECA-2009SE02804

PATIENT
  Age: 74 Year
  Sex: Male

DRUGS (5)
  1. CASODEX [Suspect]
     Indication: PROSTATE CANCER
     Route: 048
     Dates: start: 20090603, end: 20090605
  2. SUNRYTHM [Concomitant]
     Route: 048
     Dates: start: 20090517, end: 20090605
  3. TAKEPRON [Concomitant]
     Route: 048
     Dates: start: 20090519
  4. GASMOTIN [Concomitant]
     Route: 048
     Dates: start: 20090520
  5. DIGOSIN [Concomitant]
     Route: 048
     Dates: start: 20090520

REACTIONS (1)
  - PULMONARY INFARCTION [None]
